FAERS Safety Report 9018631 (Version 1)
Quarter: 2013Q1

REPORT INFORMATION
  Report Type: Spontaneous
  Country: PT (occurrence: PT)
  Receive Date: 20130118
  Receipt Date: 20130118
  Transmission Date: 20140127
  Serious: Yes (Disabling, Other)
  Sender: FDA-Public Use
  Company Number: PT-JNJFOC-20130103215

PATIENT
  Age: 36 Year
  Sex: Female

DRUGS (5)
  1. SIMPONI [Suspect]
     Indication: ANKYLOSING SPONDYLITIS
     Route: 058
     Dates: start: 20121218, end: 201212
  2. SIMPONI [Suspect]
     Indication: ANKYLOSING SPONDYLITIS
     Route: 058
     Dates: start: 201209
  3. SIMPONI [Suspect]
     Indication: ANKYLOSING SPONDYLITIS
     Route: 058
     Dates: start: 201211
  4. ANTI INFLAMMATORY [Concomitant]
     Route: 065
  5. ANALGESIC [Concomitant]
     Route: 065

REACTIONS (4)
  - Depression [Recovered/Resolved]
  - Suicidal ideation [Recovered/Resolved]
  - Anxiety [Recovered/Resolved]
  - Tibia fracture [Recovering/Resolving]
